FAERS Safety Report 15569341 (Version 1)
Quarter: 2018Q4

REPORT INFORMATION
  Report Type: Spontaneous
  Country: US (occurrence: US)
  Receive Date: 20181031
  Receipt Date: 20181031
  Transmission Date: 20190205
  Serious: No
  Sender: FDA-Public Use
  Company Number: US-BAYER-2018-200360

PATIENT
  Age: 79 Year
  Sex: Female
  Weight: 45.99 kg

DRUGS (2)
  1. FERGON [Concomitant]
     Active Substance: FERROUS GLUCONATE
     Dosage: UNK
  2. MIRALAX [Suspect]
     Active Substance: POLYETHYLENE GLYCOL 3350
     Indication: GASTROINTESTINAL DISORDER
     Dosage: UNK(QUARTER OF CAP DOSE)
     Route: 048
     Dates: start: 2016

REACTIONS (4)
  - Constipation [Unknown]
  - Diarrhoea [Unknown]
  - Underdose [Unknown]
  - Off label use [Unknown]
